FAERS Safety Report 13767372 (Version 1)
Quarter: 2017Q3

REPORT INFORMATION
  Report Type: Spontaneous
  Country: GB (occurrence: GB)
  Receive Date: 20170719
  Receipt Date: 20170719
  Transmission Date: 20171127
  Serious: Yes (Other)
  Sender: FDA-Public Use
  Company Number: GB-JNJFOC-20170709244

PATIENT
  Age: 49 Year
  Sex: Female
  Weight: 61 kg

DRUGS (3)
  1. AMITRIPTYLINE HYDROCHLORIDE. [Concomitant]
     Active Substance: AMITRIPTYLINE HYDROCHLORIDE
     Indication: PRODUCT USED FOR UNKNOWN INDICATION
     Dosage: DOSE: 1 (UNITS UNSPECIFIED)
     Route: 065
     Dates: start: 20170623, end: 20170625
  2. IBUPROFEN. [Suspect]
     Active Substance: IBUPROFEN
     Route: 065
  3. IBUPROFEN. [Suspect]
     Active Substance: IBUPROFEN
     Indication: PRODUCT USED FOR UNKNOWN INDICATION
     Route: 065
     Dates: start: 20170703

REACTIONS (1)
  - Vasculitic rash [Recovering/Resolving]

NARRATIVE: CASE EVENT DATE: 20170703
